FAERS Safety Report 9367866 (Version 1)
Quarter: 2013Q2

REPORT INFORMATION
  Report Type: Spontaneous
  Country: US (occurrence: US)
  Receive Date: 20130625
  Receipt Date: 20130625
  Transmission Date: 20140414
  Serious: No
  Sender: FDA-Public Use
  Company Number: US-ASTELLAS-2012US010523

PATIENT
  Sex: Female
  Weight: 90 kg

DRUGS (2)
  1. VESICARE [Suspect]
     Indication: PRODUCT USED FOR UNKNOWN INDICATION
     Dosage: 5 MG, UID/QD
     Route: 048
     Dates: start: 20120808
  2. ASTELIN                            /00884002/ [Concomitant]
     Indication: HYPERSENSITIVITY
     Dosage: 2 SPRAYS IN EACH NOSTRIL TWICE DAILY
     Route: 045

REACTIONS (3)
  - Dry eye [Unknown]
  - Constipation [Unknown]
  - Dry mouth [Unknown]
